FAERS Safety Report 9592980 (Version 1)
Quarter: 2013Q4

REPORT INFORMATION
  Report Type: Spontaneous
  Country: US (occurrence: None)
  Receive Date: 20131002
  Receipt Date: 20131002
  Transmission Date: 20140711
  Serious: Yes (Hospitalization)
  Sender: FDA-Public Use
  Company Number: 2013P1019599

PATIENT
  Age: 66 Year
  Sex: Male

DRUGS (16)
  1. DIGOXIN [Suspect]
  2. ALLI [Suspect]
     Indication: WEIGHT DECREASED
  3. FRUSEMIDE [Suspect]
     Indication: CARDIAC FAILURE CONGESTIVE
  4. NICOTINIC ACID [Suspect]
  5. METFORMIN HYDROCHLORIDE [Suspect]
  6. CLOPIDOGREL BISULPHATE [Suspect]
  7. GLIPIZIDE [Suspect]
  8. ESOMEPRAZOLE [Suspect]
  9. DILTIAZEM HYDROCHLORIDE [Suspect]
  10. ENALAPRIL [Suspect]
  11. WARFARIN SODIUM [Suspect]
  12. ROSUVASTATIN CALCIUM [Suspect]
  13. POTASSIUM SALT OF PORPHYRINIC COMPOUNDS [Suspect]
  14. PIOGLITAZONE [Suspect]
  15. LIRAGLUTIDE [Suspect]
  16. ALLERGY MEDICATION [Suspect]

REACTIONS (5)
  - Fluid retention [None]
  - Urine output decreased [None]
  - Cardiac failure congestive [None]
  - Drug interaction [None]
  - Pulmonary oedema [None]
